FAERS Safety Report 9604783 (Version 2)
Quarter: 2013Q4

REPORT INFORMATION
  Report Type: Spontaneous
  Country: US (occurrence: US)
  Receive Date: 20131008
  Receipt Date: 20131014
  Transmission Date: 20140711
  Serious: Yes (Other)
  Sender: FDA-Public Use
  Company Number: US-PFIZER INC-2013286280

PATIENT
  Age: 60 Year
  Sex: Male
  Weight: 63.49 kg

DRUGS (2)
  1. SUNITINIB MALATE [Suspect]
     Indication: RENAL CANCER METASTATIC
     Dosage: 50 MG DAILY, CYCLIC (X4 WEEKS, FOLLOWED BY A TWO WEEK OFF PERIOD)
  2. SUNITINIB MALATE [Suspect]
     Dosage: 37.5 MG DAILY, CYCLIC  (X4 WEEKS, FOLLOWED BY A TWO WEEK OFF PERIOD)

REACTIONS (3)
  - Renal failure [Recovered/Resolved]
  - Disease progression [Unknown]
  - Renal cancer metastatic [Unknown]
